FAERS Safety Report 8773243 (Version 1)
Quarter: 2012Q4

REPORT INFORMATION
  Report Type: 
  Country: US (occurrence: US)
  Receive Date: 20120907
  Receipt Date: 20120907
  Transmission Date: 20130627
  Serious: Yes (Other)
  Sender: FDA-Public Use
  Company Number: US-ROCHE-1083093

PATIENT
  Age: 48 Year
  Sex: Female

DRUGS (1)
  1. ZELBORAF [Suspect]
     Indication: METASTATIC MALIGNANT MELANOMA
     Route: 048
     Dates: start: 20120518

REACTIONS (5)
  - Liver function test abnormal [Unknown]
  - Blood bilirubin increased [Unknown]
  - Skin toxicity [Recovered/Resolved]
  - Encephalopathy [Recovered/Resolved]
  - Transaminases increased [Recovered/Resolved]
